FAERS Safety Report 21144838 (Version 1)
Quarter: 2022Q3

REPORT INFORMATION
  Report Type: Spontaneous
  Country: US (occurrence: None)
  Receive Date: 20220728
  Receipt Date: 20220728
  Transmission Date: 20221027
  Serious: No
  Sender: FDA-Public Use
  Company Number: US-ROCHE-2961535

PATIENT
  Sex: Female

DRUGS (1)
  1. PERJETA [Suspect]
     Active Substance: PERTUZUMAB
     Indication: Malignant melanoma
     Dosage: ONGOING UNKNOWN
     Route: 065
     Dates: start: 202004

REACTIONS (2)
  - Off label use [Unknown]
  - No adverse event [Unknown]
